FAERS Safety Report 5335429-0 (Version None)
Quarter: 2007Q2

REPORT INFORMATION
  Report Type: 
  Country: None (occurrence: None)
  Receive Date: 20070322
  Receipt Date: 20061219
  Transmission Date: 20071010
  Serious: No
  Sender: FDA-Public Use
  Company Number: 2006US002779

PATIENT
  Age: 88 Year
  Sex: Male
  Weight: 75.7 kg

DRUGS (1)
  1. VESICARE [Suspect]
     Indication: HYPERTONIC BLADDER
     Dosage: 10 MG, UID/QD, ORAL
     Route: 048
     Dates: start: 20060926, end: 20061029

REACTIONS (6)
  - ANOREXIA [None]
  - CONSTIPATION [None]
  - DRUG INEFFECTIVE [None]
  - FAECALOMA [None]
  - PRESCRIBED OVERDOSE [None]
  - WEIGHT DECREASED [None]
